FAERS Safety Report 13337830 (Version 3)
Quarter: 2018Q1

REPORT INFORMATION
  Report Type: Spontaneous
  Country: IT (occurrence: IT)
  Receive Date: 20170315
  Receipt Date: 20180222
  Transmission Date: 20180508
  Serious: Yes (Other)
  Sender: FDA-Public Use
  Company Number: IT-ELI_LILLY_AND_COMPANY-IT201703005410

PATIENT
  Age: 71 Year
  Sex: Male
  Weight: 102 kg

DRUGS (3)
  1. ERBITUX [Suspect]
     Active Substance: CETUXIMAB
     Dosage: UNK, UNKNOWN
     Route: 065
  2. IRINOTECAN [Concomitant]
     Active Substance: IRINOTECAN
     Indication: COLON NEOPLASM
     Dosage: 250 MG, UNKNOWN
     Route: 042
     Dates: start: 20150909, end: 20161123
  3. ERBITUX [Suspect]
     Active Substance: CETUXIMAB
     Indication: COLON NEOPLASM
     Dosage: 500 MG, UNKNOWN
     Route: 042
     Dates: start: 20150909, end: 20161123

REACTIONS (4)
  - Skin lesion [Recovered/Resolved]
  - Skin toxicity [Recovered/Resolved]
  - Pruritus [Recovered/Resolved]
  - Oedema peripheral [Recovered/Resolved]

NARRATIVE: CASE EVENT DATE: 20161123
